FAERS Safety Report 11183246 (Version 1)
Quarter: 2015Q2

REPORT INFORMATION
  Report Type: Spontaneous
  Country: JP (occurrence: JP)
  Receive Date: 20150611
  Receipt Date: 20150611
  Transmission Date: 20150821
  Serious: Yes (Other)
  Sender: FDA-Public Use
  Company Number: PHHY2015JP067799

PATIENT
  Age: 41 Year
  Sex: Male

DRUGS (4)
  1. LEUCOVORIN CALCIUM. [Suspect]
     Active Substance: LEUCOVORIN CALCIUM
     Indication: BLADDER CANCER
     Dosage: 200 MG/M2, 2-HOUR
     Route: 041
  2. 5-FLUOROURACIL [Suspect]
     Active Substance: FLUOROURACIL
     Indication: BLADDER CANCER
     Dosage: 400 MG/M2
     Route: 040
  3. OXALIPLATIN. [Suspect]
     Active Substance: OXALIPLATIN
     Indication: BLADDER CANCER
     Dosage: 85 MG/M2
     Route: 065
  4. 5-FLUOROURACIL [Suspect]
     Active Substance: FLUOROURACIL
     Dosage: 46-HOURINFUSION OF 2,400 MG/M 2 5-FU OVER DAYS 1 AND 2.
     Route: 040

REACTIONS (2)
  - Carcinoembryonic antigen increased [Unknown]
  - Pelvic mass [Unknown]
